FAERS Safety Report 14145553 (Version 1)
Quarter: 2017Q4

REPORT INFORMATION
  Report Type: Spontaneous
  Country: US (occurrence: US)
  Receive Date: 20171030
  Receipt Date: 20171030
  Transmission Date: 20180321
  Serious: Yes (Other)
  Sender: FDA-Public Use
  Company Number: None

PATIENT
  Age: 73 Year
  Sex: Female
  Weight: 90 kg

DRUGS (1)
  1. SYNTHROID [Suspect]
     Active Substance: LEVOTHYROXINE SODIUM
     Indication: HYPOTHYROIDISM
     Dosage: ?          QUANTITY:90 TABLET(S);?
     Route: 048
     Dates: start: 20171023, end: 20171028

REACTIONS (7)
  - Product physical issue [None]
  - Alopecia [None]
  - Product quality issue [None]
  - Fatigue [None]
  - Feeling abnormal [None]
  - Product substitution issue [None]
  - Product use issue [None]

NARRATIVE: CASE EVENT DATE: 20171027
